FAERS Safety Report 18213717 (Version 1)
Quarter: 2020Q3

REPORT INFORMATION
  Report Type: Spontaneous
  Country: US (occurrence: US)
  Receive Date: 20200831
  Receipt Date: 20200831
  Transmission Date: 20201103
  Serious: Yes (Death)
  Sender: FDA-Public Use
  Company Number: None

PATIENT
  Age: 66 Year
  Sex: Male
  Weight: 95 kg

DRUGS (15)
  1. EAU REMDESIVIR [Suspect]
     Active Substance: REMDESIVIR
     Indication: COVID-19 TREATMENT
  2. AMIODARONE [Concomitant]
     Active Substance: AMIODARONE
     Dates: start: 20200809, end: 20200827
  3. RAMELTEON [Concomitant]
     Active Substance: RAMELTEON
     Dates: end: 20200816
  4. PROPOFOL. [Concomitant]
     Active Substance: PROPOFOL
     Dates: end: 20200825
  5. CEFTRIAXONE. [Concomitant]
     Active Substance: CEFTRIAXONE
     Dates: start: 20200807
  6. QUETIAPINE. [Concomitant]
     Active Substance: QUETIAPINE
     Dates: end: 20200825
  7. DEXMEDETOMIDINE. [Concomitant]
     Active Substance: DEXMEDETOMIDINE
     Dates: start: 20200805, end: 20200811
  8. NOREPINEPHRINE. [Concomitant]
     Active Substance: NOREPINEPHRINE
     Dates: start: 20200805, end: 20200827
  9. AZITHROMYCIN ANHYDROUS. [Concomitant]
     Active Substance: AZITHROMYCIN ANHYDROUS
     Dates: end: 20200808
  10. DEXAMETHASONE. [Concomitant]
     Active Substance: DEXAMETHASONE
     Dates: start: 20200802
  11. PANTOPRAZOLE [Concomitant]
     Active Substance: PANTOPRAZOLE
     Dates: start: 20200805, end: 20200827
  12. FENTANYL. [Concomitant]
     Active Substance: FENTANYL
     Dates: start: 20200807, end: 20200827
  13. VASOPRESSIN. [Concomitant]
     Active Substance: VASOPRESSIN
     Dates: start: 20200808, end: 20200827
  14. CYANOCOBALAMIN. [Concomitant]
     Active Substance: CYANOCOBALAMIN
     Dates: start: 20200807
  15. ENOXAPARIN [Concomitant]
     Active Substance: ENOXAPARIN
     Dates: start: 20200802, end: 20200819

REACTIONS (14)
  - Acute myocardial infarction [None]
  - Hypoventilation [None]
  - General physical health deterioration [None]
  - Acute respiratory distress syndrome [None]
  - Renal failure [None]
  - Atrial fibrillation [None]
  - Alanine aminotransferase increased [None]
  - Cardiac disorder [None]
  - White blood cell count increased [None]
  - Pyrexia [None]
  - Dialysis [None]
  - Hypercapnia [None]
  - Hyperhidrosis [None]
  - Condition aggravated [None]

NARRATIVE: CASE EVENT DATE: 20200827
